FAERS Safety Report 8002778-7 (Version None)
Quarter: 2011Q4

REPORT INFORMATION
  Report Type: 
  Country: None (occurrence: None)
  Receive Date: 20111222
  Receipt Date: 20111216
  Transmission Date: 20120403
  Serious: Yes (Other)
  Sender: FDA-Public Use
  Company Number: ES-ROXANE LABORATORIES, INC.-2011-RO-01824RO

PATIENT
  Age: 88 Year
  Sex: Female

DRUGS (3)
  1. HIDROSALURETIL R [Suspect]
  2. LEVETIRACETAM [Suspect]
     Indication: COMPLEX PARTIAL SEIZURES
     Route: 042
  3. ACETYLSALICYLIC ACID SRT [Suspect]

REACTIONS (4)
  - SINUS BRADYCARDIA [None]
  - LONG QT SYNDROME [None]
  - ATRIAL FIBRILLATION [None]
  - TRICUSPID VALVE INCOMPETENCE [None]
